FAERS Safety Report 8789649 (Version 1)
Quarter: 2012Q4

REPORT INFORMATION
  Report Type: Spontaneous
  Country: US (occurrence: None)
  Receive Date: 20120911
  Receipt Date: 20120911
  Transmission Date: 20130627
  Serious: Yes (Hospitalization, Other)
  Sender: FDA-Public Use
  Company Number: None

PATIENT
  Age: 37 Year
  Sex: Female
  Weight: 108.86 kg

DRUGS (1)
  1. XOLAIR [Suspect]
     Dosage: in... dose 1x 2 wks injection
     Dates: start: 20120803

REACTIONS (9)
  - Pruritus generalised [None]
  - Pain in extremity [None]
  - Pain in extremity [None]
  - Dizziness [None]
  - Vomiting [None]
  - Pain [None]
  - Nausea [None]
  - Chest pain [None]
  - Choking sensation [None]
